FAERS Safety Report 8270804-6 (Version None)
Quarter: 2012Q2

REPORT INFORMATION
  Report Type: 
  Country: None (occurrence: None)
  Receive Date: 20120410
  Receipt Date: 20120402
  Transmission Date: 20120825
  Serious: Yes (Hospitalization)
  Sender: FDA-Public Use
  Company Number: US-BAYER-2011-083662

PATIENT
  Age: 25 Year
  Sex: Female
  Weight: 127 kg

DRUGS (7)
  1. YAZ [Suspect]
     Dosage: UNK
     Dates: start: 20081229, end: 20091231
  2. AMOXICILLIN [Concomitant]
     Dosage: UNK
     Dates: start: 20090101, end: 20110101
  3. NAPROXEN (ALEVE) [Concomitant]
     Dosage: UNK
     Dates: start: 20090101, end: 20110101
  4. IBUPROFEN (ADVIL) [Concomitant]
     Dosage: UNK
     Dates: start: 20090101, end: 20110101
  5. IBUPROFEN [Concomitant]
     Dosage: UNK
     Dates: start: 20090101, end: 20110101
  6. METRONIDAZOLE [Concomitant]
     Dosage: UNK
     Dates: start: 20090101, end: 20110101
  7. VITAMIN B COMPLEX CAP [Concomitant]
     Dosage: UNK
     Dates: start: 20090101, end: 20110101

REACTIONS (8)
  - ABDOMINAL PAIN UPPER [None]
  - ANXIETY [None]
  - EMOTIONAL DISTRESS [None]
  - CHOLECYSTITIS CHRONIC [None]
  - ANHEDONIA [None]
  - INJURY [None]
  - GENERAL PHYSICAL HEALTH DETERIORATION [None]
  - CHOLECYSTECTOMY [None]
